FAERS Safety Report 25902242 (Version 1)
Quarter: 2025Q4

REPORT INFORMATION
  Report Type: Spontaneous
  Country: US (occurrence: None)
  Receive Date: 20251008
  Receipt Date: 20251008
  Transmission Date: 20260118
  Serious: Yes (Hospitalization)
  Sender: FDA-CTU
  Company Number: None

PATIENT
  Sex: Female

DRUGS (8)
  1. MYCOPHENOLATE MOFETIL [Suspect]
     Active Substance: MYCOPHENOLATE MOFETIL
     Indication: Pulmonary hypertension
     Dosage: FREQUENCY : TWICE A DAY;?
     Route: 048
  2. MYCOPHENOLATE MOFETIL [Concomitant]
     Active Substance: MYCOPHENOLATE MOFETIL
  3. TYVASO [Concomitant]
     Active Substance: TREPROSTINIL
  4. LETAIRIS [Concomitant]
     Active Substance: AMBRISENTAN
  5. TADALAFIL [Concomitant]
     Active Substance: TADALAFIL
  6. AMBRISENTAN [Concomitant]
     Active Substance: AMBRISENTAN
  7. WINREVAIR [Suspect]
     Active Substance: SOTATERCEPT-CSRK
  8. TYVASO [Suspect]
     Active Substance: TREPROSTINIL

REACTIONS (2)
  - Therapy change [None]
  - Pericardial effusion [None]
